FAERS Safety Report 24460503 (Version 1)
Quarter: 2024Q4

REPORT INFORMATION
  Report Type: Report from Study
  Country: US (occurrence: US)
  Receive Date: 20241018
  Receipt Date: 20241018
  Transmission Date: 20250114
  Serious: No
  Sender: ROCHE
  Company Number: US-ROCHE-3536485

PATIENT
  Age: 77 Year
  Sex: Male
  Weight: 74.39 kg

DRUGS (7)
  1. RITUXAN [Suspect]
     Active Substance: RITUXIMAB
     Indication: Nephritic syndrome
     Dosage: 1000MG, DAY 1 AND 15, AND EVERY 6 MONTHS
     Route: 041
     Dates: start: 201906
  2. RITUXAN [Suspect]
     Active Substance: RITUXIMAB
     Indication: Nephrotic syndrome
     Dosage: 1000MG, DAY 1 AND 15, AND EVERY 6 MONTHS
     Route: 041
     Dates: start: 201912
  3. TAMSULOSIN [Concomitant]
     Active Substance: TAMSULOSIN
  4. ENALAPRIL [Concomitant]
     Active Substance: ENALAPRIL
  5. ROSUVASTATIN [Concomitant]
     Active Substance: ROSUVASTATIN
  6. METOPROLOL [Concomitant]
     Active Substance: METOPROLOL
  7. ASPIRIN [Concomitant]
     Active Substance: ASPIRIN

REACTIONS (2)
  - Prostatomegaly [Not Recovered/Not Resolved]
  - Off label use [Unknown]

NARRATIVE: CASE EVENT DATE: 20200101
